FAERS Safety Report 15484994 (Version 1)
Quarter: 2018Q4

REPORT INFORMATION
  Report Type: Spontaneous
  Country: US (occurrence: US)
  Receive Date: 20181010
  Receipt Date: 20181010
  Transmission Date: 20190205
  Serious: Yes (Hospitalization)
  Sender: FDA-Public Use
  Company Number: US-ROCHE-2108233

PATIENT
  Age: 77 Year
  Sex: Male

DRUGS (3)
  1. ESBRIET [Suspect]
     Active Substance: PIRFENIDONE
     Route: 048
     Dates: start: 20170906, end: 20171007
  2. ESBRIET [Suspect]
     Active Substance: PIRFENIDONE
     Route: 048
     Dates: start: 20170913
  3. ESBRIET [Suspect]
     Active Substance: PIRFENIDONE
     Indication: IDIOPATHIC PULMONARY FIBROSIS
     Route: 048
     Dates: start: 20170819, end: 20170913

REACTIONS (3)
  - Vomiting [Unknown]
  - Diarrhoea [Recovered/Resolved]
  - Abdominal pain [Recovered/Resolved]

NARRATIVE: CASE EVENT DATE: 20171007
